FAERS Safety Report 16637601 (Version 1)
Quarter: 2019Q3

REPORT INFORMATION
  Report Type: Spontaneous
  Country: US (occurrence: US)
  Receive Date: 20190726
  Receipt Date: 20190726
  Transmission Date: 20191004
  Serious: Yes (Other)
  Sender: FDA-Public Use
  Company Number: None

PATIENT
  Age: 37 Year
  Sex: Female
  Weight: 56.25 kg

DRUGS (12)
  1. IRON [Concomitant]
     Active Substance: IRON
  2. GENERI KEPPRA [Concomitant]
  3. VITAMIN D [Concomitant]
     Active Substance: VITAMIN D NOS
  4. SELENIUM [Concomitant]
     Active Substance: SELENIUM
  5. THYROID [Concomitant]
     Active Substance: LEVOTHYROXINE\LIOTHYRONINE
  6. K [Concomitant]
  7. BORON. [Concomitant]
     Active Substance: BORON
  8. MAGNESIUM [Concomitant]
     Active Substance: MAGNESIUM
  9. LEVETIRACETAM TABLETS [Suspect]
     Active Substance: LEVETIRACETAM
     Indication: EPILEPSY
     Dosage: ?          QUANTITY:1 TABLET(S) ?          THERAPY ONGOING: Y
     Route: 048
     Dates: start: 20190325, end: 20190708
  10. XANAX [Concomitant]
     Active Substance: ALPRAZOLAM
  11. GENERIC LEXAPRO [Concomitant]
     Active Substance: ESCITALOPRAM OXALATE
  12. AMOUR [Concomitant]

REACTIONS (4)
  - Product substitution issue [None]
  - Aura [None]
  - Aphasia [None]
  - Seizure [None]

NARRATIVE: CASE EVENT DATE: 20190401
